FAERS Safety Report 7238325-7 (Version None)
Quarter: 2011Q1

REPORT INFORMATION
  Report Type: 
  Country: None (occurrence: None)
  Receive Date: 20110121
  Receipt Date: 20110112
  Transmission Date: 20110831
  Serious: Yes (Other)
  Sender: FDA-Public Use
  Company Number: US-JNJFOC-20110104022

PATIENT
  Sex: Female
  Weight: 79.38 kg

DRUGS (23)
  1. PRILOSEC [Concomitant]
     Route: 048
  2. TOPIRAMATE [Concomitant]
     Route: 048
  3. DIVALPROEX SODIUM [Concomitant]
     Route: 048
  4. PLAVIX [Concomitant]
     Route: 048
  5. RISPERDAL [Concomitant]
     Dosage: DOSE 0.5 MG
  6. TRIAMTERENE AND HYDROCHLOROTHIAZIDE [Concomitant]
     Dosage: DOSE 37.5/25 MG
     Route: 048
  7. LEXAPRO [Concomitant]
     Route: 048
  8. AMITIZA [Concomitant]
  9. CALTRATE [Concomitant]
  10. POTASSIUM CHLORIDE [Concomitant]
     Route: 048
  11. FEXOFENADINE HCL [Concomitant]
     Route: 048
  12. CYMBALTA [Concomitant]
  13. MULTI-VITAMINS [Concomitant]
     Route: 048
  14. ZOLPIDEM TARTRATE [Concomitant]
     Route: 048
  15. ACETAMINOPHEN AND HYDROCODONE BITARTRATE [Concomitant]
     Dosage: DOSE 5-500 MG
     Route: 048
  16. SIMVASTATIN [Concomitant]
  17. REMICADE [Suspect]
     Indication: CROHN'S DISEASE
     Route: 042
  18. FUROSEMIDE [Concomitant]
     Route: 048
  19. PREMARIN [Concomitant]
     Route: 048
  20. ASPIRIN [Concomitant]
     Route: 048
  21. CALCIUM AND VITAMIN D [Concomitant]
     Dosage: DOSE 600/500
     Route: 048
  22. METOPROLOL TARTRATE [Concomitant]
     Route: 048
  23. ASCORBIC ACID [Concomitant]

REACTIONS (5)
  - ABDOMINAL ADHESIONS [None]
  - WEIGHT DECREASED [None]
  - ARTHRALGIA [None]
  - ABDOMINAL PAIN [None]
  - CONSTIPATION [None]
